FAERS Safety Report 9319631 (Version 4)
Quarter: 2014Q4

REPORT INFORMATION
  Report Type: Spontaneous
  Country: US (occurrence: US)
  Receive Date: 20130530
  Receipt Date: 20141125
  Transmission Date: 20150529
  Serious: Yes (Other)
  Sender: FDA-Public Use
  Company Number: US-GLAXOSMITHKLINE-A1016203A

PATIENT
  Sex: Female

DRUGS (7)
  1. FLOLAN [Suspect]
     Active Substance: EPOPROSTENOL SODIUM
     Dosage: UNK
  2. FLOLAN [Suspect]
     Active Substance: EPOPROSTENOL SODIUM
     Indication: PULMONARY ARTERIAL HYPERTENSION
     Dosage: DOSE: 20.5 NG/KG/MIN CONTINUOUSLYCONCENTRATION: 30,000 NG/MLPUMP RATE: 77 ML/DAYVIAL STRENGTH: [...]
     Route: 042
     Dates: start: 19970930
  3. FLOLAN [Suspect]
     Active Substance: EPOPROSTENOL SODIUM
     Dosage: UNK
     Dates: start: 19970930
  4. FLOLAN [Suspect]
     Active Substance: EPOPROSTENOL SODIUM
     Dosage: UNK
     Dates: start: 19970930
  5. FLOLAN [Suspect]
     Active Substance: EPOPROSTENOL SODIUM
     Dosage: UNK
     Dates: start: 19970930
  6. LETAIRIS [Concomitant]
     Active Substance: AMBRISENTAN
  7. ERYTHROMYCIN. [Suspect]
     Active Substance: ERYTHROMYCIN
     Indication: PRODUCT USED FOR UNKNOWN INDICATION
     Route: 065

REACTIONS (12)
  - Upper respiratory tract infection [Unknown]
  - Influenza [Recovering/Resolving]
  - Cough [Unknown]
  - Catheter site haemorrhage [Unknown]
  - Laryngitis [Unknown]
  - Nausea [Unknown]
  - Catheter site inflammation [Unknown]
  - Nasopharyngitis [Recovering/Resolving]
  - Local swelling [Not Recovered/Not Resolved]
  - Dry skin [Unknown]
  - Skin irritation [Unknown]
  - Catheter site infection [Unknown]
